FAERS Safety Report 18496567 (Version 1)
Quarter: 2020Q4

REPORT INFORMATION
  Report Type: Spontaneous
  Country: US (occurrence: US)
  Receive Date: 20201112
  Receipt Date: 20201112
  Transmission Date: 20210114
  Serious: Yes (Death, Other)
  Sender: FDA-Public Use
  Company Number: US-PFIZER INC-2020440434

PATIENT
  Age: 52 Year
  Sex: Female

DRUGS (1)
  1. VFEND [Suspect]
     Active Substance: VORICONAZOLE
     Dosage: 400 MG, 2X/DAY (200 MG TAKE 2 TABS TWICE A DAILY QTY 60)

REACTIONS (2)
  - Off label use [Unknown]
  - Death [Fatal]
